FAERS Safety Report 6116908-5 (Version None)
Quarter: 2009Q1

REPORT INFORMATION
  Report Type: 
  Country: None (occurrence: None)
  Receive Date: 20090314
  Receipt Date: 20090128
  Transmission Date: 20090719
  Serious: No
  Sender: FDA-Public Use
  Company Number: PR-ABBOTT-09P-131-0500447-00

PATIENT
  Sex: Male
  Weight: 104.42 kg

DRUGS (3)
  1. HUMIRA [Suspect]
     Indication: PSORIATIC ARTHROPATHY
     Route: 058
     Dates: start: 20081202, end: 20090126
  2. HYDROCHLOROTHIAZIDE [Concomitant]
     Indication: HYPERTENSION
     Route: 048
  3. GEMFIBROZIL [Concomitant]
     Indication: HYPERTRIGLYCERIDAEMIA
     Route: 048

REACTIONS (5)
  - INJECTION SITE CELLULITIS [None]
  - INJECTION SITE ERYTHEMA [None]
  - INJECTION SITE INFECTION [None]
  - INJECTION SITE INFLAMMATION [None]
  - INJECTION SITE PRURITUS [None]
